FAERS Safety Report 10923636 (Version 2)
Quarter: 2015Q2

REPORT INFORMATION
  Report Type: Spontaneous
  Country: US (occurrence: US)
  Receive Date: 20150318
  Receipt Date: 20150526
  Transmission Date: 20150821
  Serious: Yes (Other)
  Sender: FDA-Public Use
  Company Number: US-JNJFOC-20140709089

PATIENT
  Sex: Male
  Weight: 117.94 kg

DRUGS (2)
  1. RISPERDAL [Suspect]
     Active Substance: RISPERIDONE
     Indication: TOURETTE^S DISORDER
     Route: 048
     Dates: start: 2003, end: 2004
  2. HALDOL [Suspect]
     Active Substance: HALOPERIDOL
     Indication: TOURETTE^S DISORDER
     Route: 065

REACTIONS (4)
  - Emotional disorder [Unknown]
  - Gynaecomastia [Recovering/Resolving]
  - Weight increased [Recovering/Resolving]
  - Tardive dyskinesia [Unknown]

NARRATIVE: CASE EVENT DATE: 2005
